FAERS Safety Report 12543291 (Version 1)
Quarter: 2016Q3

REPORT INFORMATION
  Report Type: Spontaneous
  Country: US (occurrence: US)
  Receive Date: 20160711
  Receipt Date: 20160711
  Transmission Date: 20161109
  Serious: Yes (Other)
  Sender: FDA-Public Use
  Company Number: US-ROCHE-1789921

PATIENT
  Sex: Male
  Weight: 113.5 kg

DRUGS (16)
  1. RANITIDINE. [Concomitant]
     Active Substance: RANITIDINE
  2. NAPROXEN SODIUM. [Concomitant]
     Active Substance: NAPROXEN SODIUM
     Route: 065
  3. LUCENTIS [Suspect]
     Active Substance: RANIBIZUMAB
     Indication: DIABETIC RETINAL OEDEMA
     Route: 065
     Dates: start: 20120516
  4. QUINAPRIL. [Concomitant]
     Active Substance: QUINAPRIL
  5. FINASTERIDE. [Concomitant]
     Active Substance: FINASTERIDE
  6. IBUPROFEN. [Concomitant]
     Active Substance: IBUPROFEN
  7. EYLEA [Suspect]
     Active Substance: AFLIBERCEPT
     Dosage: DATE OF LAST DOSE PRIOR TO EVENT- 22/FEB/2016
     Route: 050
     Dates: start: 20160229
  8. EYLEA [Suspect]
     Active Substance: AFLIBERCEPT
     Dosage: DATE OF LAST DOSE PRIOR TO EVENT- 22/FEB/2016
     Route: 050
     Dates: start: 20160125
  9. LANTUS [Concomitant]
     Active Substance: INSULIN GLARGINE
  10. DOXAZOSIN [Concomitant]
     Active Substance: DOXAZOSIN\DOXAZOSIN MESYLATE
  11. ACCUPRIL [Concomitant]
     Active Substance: QUINAPRIL HYDROCHLORIDE
  12. GLIMEPIRIDE. [Concomitant]
     Active Substance: GLIMEPIRIDE
  13. OXYGEN. [Concomitant]
     Active Substance: OXYGEN
  14. EYLEA [Suspect]
     Active Substance: AFLIBERCEPT
     Indication: DIABETIC RETINAL OEDEMA
     Dosage: DATE OF LAST DOSE PRIOR TO EVENT- 22/FEB/2016
     Route: 050
     Dates: start: 20160119
  15. METFORMIN HYDROCHLORIDE. [Concomitant]
     Active Substance: METFORMIN HYDROCHLORIDE
     Route: 065
  16. EYLEA [Suspect]
     Active Substance: AFLIBERCEPT
     Dosage: DATE OF LAST DOSE PRIOR TO EVENT- 22/FEB/2016
     Route: 050
     Dates: start: 20160222

REACTIONS (6)
  - Cataract [Not Recovered/Not Resolved]
  - Visual acuity reduced [Not Recovered/Not Resolved]
  - Eye pain [Recovered/Resolved]
  - Drug ineffective [Unknown]
  - Pulmonary mass [Unknown]
  - Visual impairment [Not Recovered/Not Resolved]

NARRATIVE: CASE EVENT DATE: 20160204
